FAERS Safety Report 8857597 (Version 1)
Quarter: 2012Q4

REPORT INFORMATION
  Report Type: 
  Country: US (occurrence: US)
  Receive Date: 20121024
  Receipt Date: 20121024
  Transmission Date: 20130627
  Serious: Yes (Other)
  Sender: FDA-Public Use
  Company Number: US-PFIZER INC-2012264448

PATIENT
  Age: 63 Year
  Sex: Female
  Weight: 55.33 kg

DRUGS (6)
  1. NEURONTIN [Suspect]
     Indication: CONVULSION
     Dosage: UNK
     Dates: start: 2010, end: 2010
  2. AMLODIPINE [Concomitant]
     Indication: HYPERTENSION
     Dosage: 10 mg, 1x/day
  3. LIPITOR [Concomitant]
     Dosage: UNK, 1x/day
  4. BENAZEPRIL [Concomitant]
     Dosage: 20 mg, 1x/day
  5. VITAMIN B12 [Concomitant]
     Dosage: UNK
  6. OXYGEN [Concomitant]
     Dosage: 2.5 l, UNK

REACTIONS (5)
  - Grand mal convulsion [Unknown]
  - Drug hypersensitivity [Unknown]
  - Intervertebral disc protrusion [Unknown]
  - Burning sensation [Unknown]
  - Pain [Unknown]
